FAERS Safety Report 25725912 (Version 2)
Quarter: 2025Q4

REPORT INFORMATION
  Report Type: Spontaneous
  Country: EU (occurrence: EU)
  Receive Date: 20250826
  Receipt Date: 20251007
  Transmission Date: 20260117
  Serious: Yes (Life-Threatening, Hospitalization, Other)
  Sender: RANBAXY
  Company Number: EU-SUN PHARMACEUTICAL INDUSTRIES LTD-2025RR-524103

PATIENT
  Age: 46 Year
  Sex: Female

DRUGS (3)
  1. ACETAMINOPHEN [Interacting]
     Active Substance: ACETAMINOPHEN
     Indication: Suicidal ideation
     Dosage: 3.5 GRAM, IN TOTAL
     Route: 048
     Dates: start: 20240910, end: 20240910
  2. LORAZEPAM [Interacting]
     Active Substance: LORAZEPAM
     Indication: Suicidal ideation
     Dosage: 100 MILLIGRAM, IN TOTAL
     Route: 048
     Dates: start: 20240910, end: 20240910
  3. TRAMADOL [Interacting]
     Active Substance: TRAMADOL
     Indication: Product used for unknown indication
     Dosage: 400 MILLIGRAM, IN TOTAL
     Route: 048
     Dates: start: 20240910, end: 20240910

REACTIONS (3)
  - Depressed level of consciousness [Recovered/Resolved]
  - Suicide attempt [Unknown]
  - Intentional overdose [Recovered/Resolved]

NARRATIVE: CASE EVENT DATE: 20240910
